FAERS Safety Report 24341208 (Version 1)
Quarter: 2024Q3

REPORT INFORMATION
  Report Type: Spontaneous
  Country: JP (occurrence: JP)
  Receive Date: 20240919
  Receipt Date: 20240919
  Transmission Date: 20241016
  Serious: Yes (Other)
  Sender: GLAXOSMITHKLINE
  Company Number: JP-GSKJP-JP2024JPN113326AA

PATIENT

DRUGS (2)
  1. DAPRODUSTAT [Suspect]
     Active Substance: DAPRODUSTAT
     Dosage: 2 MG
  2. NOVORAPID [Concomitant]
     Active Substance: INSULIN ASPART
     Indication: Diabetes mellitus management
     Dosage: UNK, INCREASED THE NUMBER OF UNITS

REACTIONS (1)
  - Diabetes mellitus inadequate control [Unknown]
